FAERS Safety Report 13297516 (Version 1)
Quarter: 2017Q1

REPORT INFORMATION
  Report Type: Spontaneous
  Country: US (occurrence: US)
  Receive Date: 20170305
  Receipt Date: 20170305
  Transmission Date: 20170428
  Serious: No
  Sender: FDA-Public Use
  Company Number: None

PATIENT
  Age: 7 Year
  Sex: Female
  Weight: 29.25 kg

DRUGS (1)
  1. POLYETHYLENE GLYCOL 3350. [Suspect]
     Active Substance: POLYETHYLENE GLYCOL 3350
     Indication: CONSTIPATION
     Dosage: 1 TABLESPOON(S) DAILY ORAL
     Route: 048
     Dates: start: 20161121, end: 20170220

REACTIONS (3)
  - Mental disorder [None]
  - Aggression [None]
  - Nervous system disorder [None]

NARRATIVE: CASE EVENT DATE: 20170214
